FAERS Safety Report 8484318-1 (Version None)
Quarter: 2012Q3

REPORT INFORMATION
  Report Type: 
  Country: None (occurrence: None)
  Receive Date: 20120703
  Receipt Date: 20120625
  Transmission Date: 20120928
  Serious: Yes (Hospitalization)
  Sender: FDA-Public Use
  Company Number: PHHY2011FR103407

PATIENT
  Sex: Female

DRUGS (9)
  1. TEGRETOL [Suspect]
     Indication: AFFECTIVE DISORDER
     Dosage: 200 MG, QD
     Route: 048
     Dates: start: 19980101, end: 20090101
  2. OMEPRAZOLE [Concomitant]
     Dosage: 6 DF, DAILY
  3. TEGRETOL [Suspect]
     Dosage: 400 MG, BID
     Dates: start: 20110101
  4. VALPROIC ACID [Suspect]
     Dates: end: 20110701
  5. NEBIVOLOL HCL [Concomitant]
     Dosage: 5 MG, UNK
  6. RISPERIDONE [Suspect]
     Dates: end: 20110701
  7. TEGRETOL [Suspect]
     Dosage: 200 MG, QD
     Dates: start: 20090101
  8. ABILIFY [Concomitant]
     Dosage: UNK UKN, UNK
  9. HALDOL [Concomitant]
     Dosage: UNK UKN, UNK
     Dates: start: 19980101, end: 20090101

REACTIONS (6)
  - OEDEMA PERIPHERAL [None]
  - FACE OEDEMA [None]
  - WEIGHT INCREASED [None]
  - ANAEMIA [None]
  - FIBROSIS [None]
  - DEPRESSION [None]
